FAERS Safety Report 18564536 (Version 1)
Quarter: 2020Q4

REPORT INFORMATION
  Report Type: Spontaneous
  Country: US (occurrence: US)
  Receive Date: 20201130
  Receipt Date: 20201130
  Transmission Date: 20210114
  Serious: Yes (Death)
  Sender: FDA-Public Use
  Company Number: None

PATIENT
  Age: 75 Year
  Sex: Female
  Weight: 135 kg

DRUGS (7)
  1. COUMADIN, ORAL [Concomitant]
  2. SPIRONOLACTONE, ORAL [Concomitant]
  3. ALLEGRA ALLERGY, ORAL [Concomitant]
  4. ATENOLOL, ORAL [Concomitant]
  5. OXYCODONE HCL, ORAL [Concomitant]
  6. IBRANCE [Suspect]
     Active Substance: PALBOCICLIB
     Indication: BREAST CANCER FEMALE
     Route: 048
     Dates: start: 20200515, end: 20201130
  7. FUROSEMIDE, ORAL [Concomitant]

REACTIONS (1)
  - Death [None]

NARRATIVE: CASE EVENT DATE: 20201130
